FAERS Safety Report 4964002-9 (Version None)
Quarter: 2006Q1

REPORT INFORMATION
  Report Type: 
  Country: None (occurrence: None)
  Receive Date: 20060330
  Receipt Date: 20060322
  Transmission Date: 20060701
  Serious: Yes (Other)
  Sender: FDA-Public Use
  Company Number: 2006041292

PATIENT
  Age: 29 Year
  Sex: Female
  Weight: 39.9165 kg

DRUGS (1)
  1. DILANTIN [Suspect]
     Indication: CONVULSION

REACTIONS (3)
  - COORDINATION ABNORMAL [None]
  - DRUG LEVEL FLUCTUATING [None]
  - NYSTAGMUS [None]
